FAERS Safety Report 4566538-1 (Version None)
Quarter: 2005Q1

REPORT INFORMATION
  Report Type: 
  Country: None (occurrence: None)
  Receive Date: 20050126
  Receipt Date: 20050126
  Transmission Date: 20050727
  Serious: No
  Sender: FDA-Public Use
  Company Number: None

PATIENT
  Age: 78 Year
  Sex: Female
  Weight: 53.0709 kg

DRUGS (2)
  1. HYOSCYAMINE .125 MG [Suspect]
     Indication: INTESTINAL HYPERMOTILITY
     Dosage: 3 X A DAY MOUTH
     Route: 048
     Dates: start: 20050108, end: 20050108
  2. HYOSCYAMINE .125 MG [Suspect]
     Indication: INTESTINAL HYPERMOTILITY
     Dosage: 3 X A DAY MOUTH
     Route: 048
     Dates: start: 20051029

REACTIONS (3)
  - HEADACHE [None]
  - VISION BLURRED [None]
  - VISUAL ACUITY REDUCED [None]
